FAERS Safety Report 20993598 (Version 1)
Quarter: 2022Q2

REPORT INFORMATION
  Report Type: Spontaneous
  Country: CA (occurrence: CA)
  Receive Date: 20220622
  Receipt Date: 20220622
  Transmission Date: 20220721
  Serious: Yes (Other)
  Sender: FDA-Public Use
  Company Number: CA-NAPPMUNDI-GBR-2022-0099192

PATIENT
  Age: 60 Year
  Sex: Female

DRUGS (8)
  1. MORPHINE SULFATE [Suspect]
     Active Substance: MORPHINE SULFATE
     Indication: Product used for unknown indication
     Dosage: UNK
     Route: 065
  2. OMALIZUMAB [Suspect]
     Active Substance: OMALIZUMAB
     Indication: Chronic spontaneous urticaria
     Dosage: 300 MILLIGRAM (REPORTED 14 TIMES)
     Route: 058
  3. OMALIZUMAB [Suspect]
     Active Substance: OMALIZUMAB
     Dosage: UNK (REPORTED 2 TIMES)
     Route: 058
  4. OMALIZUMAB [Suspect]
     Active Substance: OMALIZUMAB
     Dosage: UNK
     Route: 065
  5. ATENOLOL [Concomitant]
     Active Substance: ATENOLOL
     Indication: Migraine
     Dosage: 50 MILLIGRAM
     Route: 065
  6. CLOPIDOGREL BISULFATE [Concomitant]
     Active Substance: CLOPIDOGREL BISULFATE
     Route: 065
  7. CETIRIZINE HYDROCHLORIDE [Concomitant]
     Active Substance: CETIRIZINE HYDROCHLORIDE
     Dosage: 1 DOSAGE FORM, DAILY
     Route: 065
  8. ZANTAC [Concomitant]
     Active Substance: RANITIDINE HYDROCHLORIDE
     Dosage: 1 DOSAGE FORM, 2 EVERY 1 DAYS

REACTIONS (25)
  - Abdominal pain lower [Not Recovered/Not Resolved]
  - Balance disorder [Not Recovered/Not Resolved]
  - Blood potassium increased [Not Recovered/Not Resolved]
  - Blood pressure systolic increased [Not Recovered/Not Resolved]
  - Bronchitis [Not Recovered/Not Resolved]
  - Diarrhoea [Not Recovered/Not Resolved]
  - Drug hypersensitivity [Not Recovered/Not Resolved]
  - Headache [Not Recovered/Not Resolved]
  - Hypertension [Not Recovered/Not Resolved]
  - Influenza [Not Recovered/Not Resolved]
  - Insomnia [Not Recovered/Not Resolved]
  - Intermittent claudication [Not Recovered/Not Resolved]
  - Migraine with aura [Not Recovered/Not Resolved]
  - Muscle spasms [Not Recovered/Not Resolved]
  - Pain in extremity [Not Recovered/Not Resolved]
  - Peripheral artery occlusion [Not Recovered/Not Resolved]
  - Peripheral swelling [Not Recovered/Not Resolved]
  - Peripheral vascular disorder [Not Recovered/Not Resolved]
  - Pruritus [Not Recovered/Not Resolved]
  - Pyrexia [Not Recovered/Not Resolved]
  - Skin ulcer [Not Recovered/Not Resolved]
  - Sluggishness [Not Recovered/Not Resolved]
  - Urinary tract infection [Not Recovered/Not Resolved]
  - Urticaria [Not Recovered/Not Resolved]
  - Vertigo [Not Recovered/Not Resolved]
